FAERS Safety Report 10440555 (Version 1)
Quarter: 2014Q3

REPORT INFORMATION
  Report Type: Spontaneous
  Country: US (occurrence: US)
  Receive Date: 20140909
  Receipt Date: 20140909
  Transmission Date: 20150326
  Serious: Yes (Other)
  Sender: FDA-Public Use
  Company Number: US-009507513-1409USA001535

PATIENT
  Age: 53 Year
  Sex: Male

DRUGS (1)
  1. ISENTRESS [Suspect]
     Active Substance: RALTEGRAVIR POTASSIUM
     Indication: HIV INFECTION
     Dosage: 400 MG TWICE DAILY
     Route: 048

REACTIONS (4)
  - Dysphagia [Not Recovered/Not Resolved]
  - Radiotherapy [Not Recovered/Not Resolved]
  - Nasopharyngeal cancer [Not Recovered/Not Resolved]
  - Gastrostomy [Not Recovered/Not Resolved]
